FAERS Safety Report 7328069-5 (Version None)
Quarter: 2011Q1

REPORT INFORMATION
  Report Type: 
  Country: None (occurrence: None)
  Receive Date: 20110303
  Receipt Date: 20110223
  Transmission Date: 20110831
  Serious: Yes (Hospitalization, Other)
  Sender: FDA-Public Use
  Company Number: JP-JNJFOC-20101202403

PATIENT
  Sex: Male
  Weight: 68 kg

DRUGS (12)
  1. METOLATE [Suspect]
     Route: 048
  2. REMICADE [Suspect]
     Dosage: 8 INFUSIONS ON UNPSECIFIED DATES
     Route: 042
  3. METOLATE [Suspect]
     Indication: RHEUMATOID ARTHRITIS
     Route: 048
  4. METOLATE [Suspect]
     Route: 048
  5. REMICADE [Suspect]
     Indication: RHEUMATOID ARTHRITIS
     Dosage: 10TH DOSE OF INFLIXIMAB
     Route: 042
  6. METHOTREXATE [Concomitant]
     Indication: RHEUMATOID ARTHRITIS
     Route: 048
  7. SALAZOSULFAPYRIDINE [Concomitant]
     Indication: RHEUMATOID ARTHRITIS
     Route: 048
  8. METOLATE [Suspect]
     Route: 048
  9. METOLATE [Suspect]
     Route: 048
  10. REMICADE [Suspect]
     Route: 042
  11. SALAZOSULFAPYRIDINE [Concomitant]
     Route: 048
  12. REMICADE [Suspect]
     Dosage: 11TH DOSE
     Route: 042

REACTIONS (4)
  - STREPTOCOCCAL INFECTION [None]
  - FALL [None]
  - ENDOCARDITIS BACTERIAL [None]
  - CLAVICLE FRACTURE [None]
